FAERS Safety Report 9224203 (Version 3)
Quarter: 2013Q2

REPORT INFORMATION
  Report Type: Spontaneous
  Country: US (occurrence: US)
  Receive Date: 20130411
  Receipt Date: 20130510
  Transmission Date: 20140414
  Serious: Yes (Hospitalization)
  Sender: FDA-Public Use
  Company Number: US-009507513-1304USA004178

PATIENT
  Sex: Female

DRUGS (4)
  1. VICTRELIS [Suspect]
     Indication: CHRONIC HEPATITIS C
     Dosage: TID, PRN
     Route: 048
     Dates: start: 20130430, end: 20130430
  2. RIBASPHERE [Suspect]
     Indication: CHRONIC HEPATITIS C
     Dosage: 800 MG, QD
     Dates: start: 20130405, end: 20130430
  3. RIBASPHERE [Suspect]
     Dosage: DAILY
     Dates: start: 20130220
  4. PEGASYS [Suspect]
     Indication: CHRONIC HEPATITIS C
     Dosage: 180 MICROGRAM, WEEKLY
     Dates: start: 20130220, end: 20130430

REACTIONS (15)
  - Pneumonia [Unknown]
  - Fatigue [Unknown]
  - Dyspnoea [Unknown]
  - Dizziness [Unknown]
  - Dry skin [Unknown]
  - Skin fissures [Unknown]
  - Pain [Unknown]
  - Blood count abnormal [Unknown]
  - Asthenia [Unknown]
  - Anaemia [Unknown]
  - Full blood count decreased [Unknown]
  - Chest pain [Unknown]
  - Cough [Unknown]
  - Throat irritation [Unknown]
  - Glossodynia [Unknown]
